FAERS Safety Report 8791522 (Version 1)
Quarter: 2012Q4

REPORT INFORMATION
  Report Type: Spontaneous
  Country: US (occurrence: None)
  Receive Date: 20120914
  Receipt Date: 20120914
  Transmission Date: 20130627
  Serious: No
  Sender: FDA-Public Use
  Company Number: None

PATIENT
  Age: 44 Year
  Sex: Female
  Weight: 63.5 kg

DRUGS (2)
  1. CAPSAICIN [Suspect]
     Indication: NECK PAIN
     Dates: start: 20120210, end: 20120210
  2. CAPSAICIN [Suspect]
     Indication: CHEST PAIN
     Dates: start: 20120210, end: 20120210

REACTIONS (2)
  - Burning sensation [None]
  - Erythema [None]
